FAERS Safety Report 8836213 (Version 4)
Quarter: 2014Q1

REPORT INFORMATION
  Report Type: Spontaneous
  Country: US (occurrence: US)
  Receive Date: 20121011
  Receipt Date: 20140124
  Transmission Date: 20141002
  Serious: No
  Sender: FDA-Public Use
  Company Number: US-ASTRAZENECA-2012SE74472

PATIENT
  Age: 55 Year
  Sex: Female
  Weight: 86.6 kg

DRUGS (33)
  1. NEXIUM [Suspect]
     Indication: GASTROOESOPHAGEAL REFLUX DISEASE
     Route: 048
     Dates: start: 2011, end: 20140103
  2. LISINOPRIL [Suspect]
     Route: 048
  3. ULTRAM [Concomitant]
     Route: 048
  4. VIOXX [Concomitant]
     Route: 048
  5. PERCODON [Concomitant]
     Route: 048
  6. DARVON [Concomitant]
     Route: 048
  7. PENICILLIN [Concomitant]
     Route: 048
  8. METPHRAM [Concomitant]
     Route: 048
  9. AVANDIA [Concomitant]
     Route: 048
  10. JUNIRA [Concomitant]
     Route: 048
  11. ACTED [Concomitant]
     Route: 048
  12. MOBIC [Concomitant]
     Route: 048
  13. VICODAN [Concomitant]
     Route: 048
  14. LYRICA [Concomitant]
     Indication: FIBROMYALGIA
  15. VITAMIN D3 [Concomitant]
     Indication: VITAMIN D ABNORMAL
  16. VOLTAREN [Concomitant]
     Indication: BACK PAIN
  17. ATIVAN [Concomitant]
     Indication: ANXIETY
  18. DOCUSATE SODIUM [Concomitant]
     Indication: FAECES HARD
  19. PRISTIQ [Concomitant]
     Indication: DEPRESSION
  20. EST ESTROGENMTEST [Concomitant]
     Indication: HORMONE REPLACEMENT THERAPY
  21. ASPIRIN [Concomitant]
     Indication: ANTICOAGULANT THERAPY
  22. METAMUCIL [Concomitant]
     Indication: DIVERTICULITIS
  23. AMLODIPINE [Concomitant]
     Indication: HYPERTENSION
  24. AMLODIPINE [Concomitant]
     Indication: GOUT
  25. MOXGIDU [Concomitant]
     Indication: HYPERTENSION
  26. CALAN SR [Concomitant]
     Indication: HYPERTENSION
  27. COLESEVELAM HCL [Concomitant]
     Indication: BLOOD CHOLESTEROL
  28. ATENOLOL [Concomitant]
     Indication: BLOOD PRESSURE ABNORMAL
  29. MAXIDE [Concomitant]
     Indication: BLOOD PRESSURE ABNORMAL
  30. OXYBUTNIM [Concomitant]
     Indication: URINARY RETENTION
  31. ALLOPURINOL [Concomitant]
  32. BALCK COHOSH [Concomitant]
     Indication: HOT FLUSH
  33. FISH OIL [Concomitant]
     Indication: CARDIOVASCULAR DISORDER

REACTIONS (3)
  - Blood potassium increased [Unknown]
  - Renal impairment [Unknown]
  - Drug dose omission [Unknown]
